FAERS Safety Report 10483777 (Version 1)
Quarter: 2014Q3

REPORT INFORMATION
  Report Type: Spontaneous
  Country: ES (occurrence: ES)
  Receive Date: 20140930
  Receipt Date: 20140930
  Transmission Date: 20150326
  Serious: Yes (Hospitalization)
  Sender: FDA-Public Use
  Company Number: ES-MYLANLABS-2014M1005630

PATIENT

DRUGS (9)
  1. DIGOXIN. [Suspect]
     Active Substance: DIGOXIN
     Indication: ATRIAL FIBRILLATION
     Dosage: AN AMPOULE OF DIGOXIN 0.25MG FOLLOWED BY 0.125 MG TABLET OF DIGOXIN
     Route: 065
  2. OMEPRAZOLE. [Concomitant]
     Active Substance: OMEPRAZOLE
     Route: 065
  3. AMIODARONE [Interacting]
     Active Substance: AMIODARONE
     Dosage: 2 AMPOULES OF AMIODARONE FOLLOWED BY 150MG OF AMIODARONE
     Route: 065
  4. ACETYLCYSTEINE. [Concomitant]
     Active Substance: ACETYLCYSTEINE
     Route: 065
  5. ERYTHROPOIETIN [Concomitant]
     Active Substance: ERYTHROPOIETIN
     Route: 065
  6. DIGOXIN. [Interacting]
     Active Substance: DIGOXIN
     Dosage: 0.125 MG
     Route: 065
  7. ENOXAPARIN SODIUM. [Concomitant]
     Active Substance: ENOXAPARIN SODIUM
     Route: 065
  8. AMIODARONE [Interacting]
     Active Substance: AMIODARONE
     Dosage: 150MG OF AMIODARONE
     Route: 065
  9. ASPIRIN. [Concomitant]
     Active Substance: ASPIRIN
     Route: 065

REACTIONS (5)
  - Ventricular fibrillation [Recovering/Resolving]
  - Toxicity to various agents [Recovering/Resolving]
  - Cardio-respiratory arrest [Recovering/Resolving]
  - Ventricular flutter [None]
  - Drug interaction [Recovering/Resolving]
